FAERS Safety Report 14013247 (Version 2)
Quarter: 2017Q4

REPORT INFORMATION
  Report Type: Spontaneous
  Country: JP (occurrence: JP)
  Receive Date: 20170926
  Receipt Date: 20171031
  Transmission Date: 20180321
  Serious: Yes (Other)
  Sender: FDA-Public Use
  Company Number: JP-PFIZER INC-2017327181

PATIENT
  Age: 70 Year
  Sex: Female

DRUGS (6)
  1. HUMIRA [Suspect]
     Active Substance: ADALIMUMAB
     Indication: RHEUMATOID ARTHRITIS
     Dosage: 40 MG, EVERY 2 WEEKS
     Route: 058
     Dates: start: 2017, end: 20170712
  2. AZULFIDINE EN-TABS [Concomitant]
     Active Substance: SULFASALAZINE
     Indication: RHEUMATOID ARTHRITIS
     Dosage: 250 MG, TWICE DAILY
     Route: 048
     Dates: start: 20141227
  3. RHEUMATREX [Suspect]
     Active Substance: METHOTREXATE SODIUM
     Indication: RHEUMATOID ARTHRITIS
     Dosage: 6 MG, WEEKLY
     Route: 048
     Dates: start: 20150328, end: 20170802
  4. HYPEN /00613801/ [Concomitant]
     Active Substance: ETODOLAC
     Dosage: 100 MG, TWICE DAILY
     Route: 048
     Dates: start: 20141227
  5. PREDNISOLONE. [Concomitant]
     Active Substance: PREDNISOLONE
     Dosage: 5 MG, ONCE DAILY
     Route: 048
     Dates: start: 20141227, end: 20150124
  6. FOLIAMIN [Concomitant]
     Active Substance: FOLIC ACID
     Dosage: 5 MG, ONCE DAILY
     Route: 048
     Dates: start: 20150620, end: 20170802

REACTIONS (5)
  - Iron deficiency anaemia [Recovered/Resolved]
  - Herpes zoster [Recovered/Resolved]
  - Rheumatoid lung [Not Recovered/Not Resolved]
  - Gastritis erosive [Unknown]
  - Lymphadenitis [Recovered/Resolved]

NARRATIVE: CASE EVENT DATE: 20150530
